FAERS Safety Report 6614595-0 (Version None)
Quarter: 2010Q1

REPORT INFORMATION
  Report Type: 
  Country: None (occurrence: None)
  Receive Date: 20100226
  Receipt Date: 20100212
  Transmission Date: 20100710
  Serious: Yes (Death)
  Sender: FDA-Public Use
  Company Number: KV201000024

PATIENT
  Age: 58 Year
  Sex: Male
  Weight: 105.2 kg

DRUGS (20)
  1. MORPHINE SULFATE [Suspect]
     Indication: DRUG USE FOR UNKNOWN INDICATION
     Dosage: 60 MG, BID, ORAL
     Route: 048
     Dates: start: 20080226
  2. OXYCODONE HCL ER (OXYCODONE HYDROCHLORIDE) [Concomitant]
  3. NEURONTIN [Concomitant]
  4. GLYBURIDE [Concomitant]
  5. VARENICLINE (VARENICLINE) [Concomitant]
  6. LEXAPRO (ESCITALOPRAM OXYLATE) [Concomitant]
  7. NITROQUICK (GLYCERYL TRINITRATE) [Concomitant]
  8. PLAVIX [Concomitant]
  9. GLUCOPHAGE /00082701/ (METFORMIN) [Concomitant]
  10. HYDROCODONE (HYDROCODONE) [Concomitant]
  11. FLEXERIL /00428402/ (CYCLOBENZAPRINE HYDROCHLORIDE) [Concomitant]
  12. ASPIRIN [Concomitant]
  13. ZANTAC /00550802/ (RANITIDINE HYDROCHLORIDE) [Concomitant]
  14. QUININE SULFATE [Concomitant]
  15. HYTRIN [Concomitant]
  16. ZETIA [Concomitant]
  17. METOPROLOL (METOPROLOL) [Concomitant]
  18. LYRICA [Concomitant]
  19. INSULIN (INSULIN) [Concomitant]
  20. NORVASC /00972401/ (AMLODIPINE) [Concomitant]

REACTIONS (6)
  - ARTERIOSCLEROSIS [None]
  - CARDIAC ARREST [None]
  - DIABETES MELLITUS [None]
  - HYPERCHOLESTEROLAEMIA [None]
  - HYPERTENSION [None]
  - UNRESPONSIVE TO STIMULI [None]
